FAERS Safety Report 12670001 (Version 1)
Quarter: 2016Q3

REPORT INFORMATION
  Report Type: Spontaneous
  Country: US (occurrence: US)
  Receive Date: 20160821
  Receipt Date: 20160821
  Transmission Date: 20161109
  Serious: No
  Sender: FDA-Public Use
  Company Number: US-DRREDDYS-USA/USA/16/0080280

PATIENT
  Age: 18 Year
  Sex: Male

DRUGS (4)
  1. SIROLIMUS. [Suspect]
     Active Substance: SIROLIMUS
     Route: 048
  2. ZOLEDRONIC ACID [Concomitant]
     Active Substance: ZOLEDRONIC ACID
     Indication: PRODUCT USED FOR UNKNOWN INDICATION
     Route: 042
  3. SIROLIMUS. [Suspect]
     Active Substance: SIROLIMUS
     Indication: PRODUCT USED FOR UNKNOWN INDICATION
     Route: 048
  4. PEGYLATED INTERFERON-A2B [Concomitant]
     Indication: PRODUCT USED FOR UNKNOWN INDICATION
     Dosage: 2 MILLION IU/M2/DOSE SUBCUTANEOUSLY
     Route: 058

REACTIONS (3)
  - Stomatitis [Recovered/Resolved]
  - Treatment noncompliance [Unknown]
  - Hyperlipidaemia [Recovered/Resolved]
